FAERS Safety Report 6306703-6 (Version None)
Quarter: 2009Q3

REPORT INFORMATION
  Report Type: 
  Country: None (occurrence: None)
  Receive Date: 20090812
  Receipt Date: 20090508
  Transmission Date: 20100115
  Serious: No
  Sender: FDA-Public Use
  Company Number: A0783220A

PATIENT
  Age: 9 Year
  Sex: Male

DRUGS (2)
  1. VERAMYST [Suspect]
     Dosage: 1 PER DAY
     Route: 045
     Dates: start: 20090421
  2. PULMICORT-100 [Concomitant]

REACTIONS (2)
  - COUGH [None]
  - OROPHARYNGEAL PAIN [None]
